FAERS Safety Report 17391751 (Version 1)
Quarter: 2020Q1

REPORT INFORMATION
  Report Type: Spontaneous
  Country: SE (occurrence: SE)
  Receive Date: 20200207
  Receipt Date: 20200207
  Transmission Date: 20200409
  Serious: Yes (Death)
  Sender: FDA-Public Use
  Company Number: SE-ELI_LILLY_AND_COMPANY-SE202002002009

PATIENT
  Age: 16 Year
  Sex: Male

DRUGS (1)
  1. STRATTERA [Suspect]
     Active Substance: ATOMOXETINE HYDROCHLORIDE
     Indication: PRODUCT USED FOR UNKNOWN INDICATION
     Dosage: 40 MG, DAILY
     Route: 065
     Dates: start: 201803, end: 201809

REACTIONS (5)
  - Product prescribing issue [Fatal]
  - Sleep disorder [Fatal]
  - Aggression [Fatal]
  - Completed suicide [Fatal]
  - Anxiety [Fatal]

NARRATIVE: CASE EVENT DATE: 201803
